FAERS Safety Report 7222017-4 (Version None)
Quarter: 2011Q1

REPORT INFORMATION
  Report Type: 
  Country: None (occurrence: None)
  Receive Date: 20110103
  Receipt Date: 20101220
  Transmission Date: 20110831
  Serious: Yes (Hospitalization, Disabling)
  Sender: FDA-Public Use
  Company Number: 2009AC000096

PATIENT
  Age: 62 Year
  Sex: Male
  Weight: 125.6464 kg

DRUGS (33)
  1. DIGOXIN [Suspect]
     Dosage: 0.125 MG; QD; PO
     Route: 048
     Dates: start: 20070427, end: 20080101
  2. ASCORBIC ACID [Concomitant]
  3. DIGOXIN [Suspect]
     Dosage: 0.25 MG; BID; PO
     Route: 048
     Dates: start: 20031208, end: 20050101
  4. LISINOPRIL [Concomitant]
  5. WARFARIN SODIUM [Concomitant]
  6. ACTOS [Concomitant]
  7. BENAZEPRIL HYDROCHLORIDE [Concomitant]
  8. AMBIEN CR [Concomitant]
  9. DIGOXIN [Suspect]
     Dosage: 0.375 MG; QD; PO
     Route: 048
     Dates: start: 20050404, end: 20050101
  10. ATENOLOL [Concomitant]
  11. CANDESARTAN [Concomitant]
  12. VICODIN [Concomitant]
  13. DIGOXIN [Suspect]
     Dosage: 0.25 MG; BID
     Dates: start: 20060109, end: 20070101
  14. IBUPROFEN [Concomitant]
  15. LIPITOR [Concomitant]
  16. GLUCOSAMINE [Concomitant]
  17. IRON [Concomitant]
  18. LEVOXIL [Concomitant]
  19. DILTIAZEM [Concomitant]
  20. LOVAZA [Concomitant]
  21. DIGOXIN TABLETS, USP (AMDE) [Suspect]
     Dosage: 0.25 MG; BID; PO
     Route: 048
     Dates: start: 19950101, end: 20080301
  22. DIGOXIN [Suspect]
     Dosage: 250 MCG; QD; PO
     Route: 048
     Dates: start: 20080131, end: 20090101
  23. DOCUSATE [Concomitant]
  24. COUMADIN [Concomitant]
  25. PACERONE [Concomitant]
  26. PROPOXYPHENE HYDROCHLORIDE [Concomitant]
  27. METFORMIN HCL [Concomitant]
  28. AVANDIA [Concomitant]
  29. ALLOPURINOL [Concomitant]
  30. LOTENSIN [Concomitant]
  31. ASPIRIN [Concomitant]
  32. MULTI-VITAMIN [Concomitant]
  33. BETAPACE [Concomitant]

REACTIONS (28)
  - INJURY [None]
  - MENTAL DISORDER [None]
  - BLOOD THYROID STIMULATING HORMONE INCREASED [None]
  - OSTEOARTHRITIS [None]
  - DIARRHOEA [None]
  - VOMITING [None]
  - VISUAL IMPAIRMENT [None]
  - ATAXIA [None]
  - PAIN [None]
  - FATIGUE [None]
  - BACK PAIN [None]
  - VERTEBRAL FORAMINAL STENOSIS [None]
  - HYPERTENSION [None]
  - NAUSEA [None]
  - MUSCLE SPASMS [None]
  - ARTHRALGIA [None]
  - NEURALGIA [None]
  - WEIGHT DECREASED [None]
  - MYOCARDIAL ISCHAEMIA [None]
  - ABDOMINAL PAIN LOWER [None]
  - MUSCULOSKELETAL STIFFNESS [None]
  - HEART RATE DECREASED [None]
  - ECONOMIC PROBLEM [None]
  - ABDOMINAL PAIN [None]
  - DIZZINESS [None]
  - EXOSTOSIS [None]
  - EMOTIONAL DISORDER [None]
  - PALPITATIONS [None]
